FAERS Safety Report 6044372-3 (Version None)
Quarter: 2009Q1

REPORT INFORMATION
  Report Type: 
  Country: None (occurrence: None)
  Receive Date: 20090120
  Receipt Date: 20090108
  Transmission Date: 20090719
  Serious: Yes (Hospitalization)
  Sender: FDA-Public Use
  Company Number: FR-ELI_LILLY_AND_COMPANY-FR200901001803

PATIENT
  Sex: Female
  Weight: 58 kg

DRUGS (3)
  1. RALOXIFENE HYDROCHLORIDE [Suspect]
     Indication: OSTEOPOROSIS POSTMENOPAUSAL
     Dosage: 60 MG, DAILY (1/D)
     Route: 048
     Dates: start: 20070306
  2. LEVOTHYROXINE SODIUM [Concomitant]
     Indication: HYPOTHYROIDISM
     Dosage: 50 UG, DAILY (1/D)
     Dates: start: 20010101
  3. ART 50 [Concomitant]
     Indication: OSTEOARTHRITIS
     Dosage: 50 MG, DAILY (1/D)
     Dates: start: 20031112

REACTIONS (2)
  - FALL [None]
  - UPPER LIMB FRACTURE [None]
